FAERS Safety Report 20998397 (Version 1)
Quarter: 2022Q2

REPORT INFORMATION
  Report Type: Spontaneous
  Country: AU (occurrence: AU)
  Receive Date: 20220623
  Receipt Date: 20220623
  Transmission Date: 20220721
  Serious: Yes (Hospitalization, Other)
  Sender: FDA-Public Use
  Company Number: AU-PFIZER INC-202200857452

PATIENT
  Age: 32 Year
  Sex: Female

DRUGS (1)
  1. IBRANCE [Suspect]
     Active Substance: PALBOCICLIB
     Dosage: UNK

REACTIONS (12)
  - Carbohydrate antigen 15-3 increased [Recovering/Resolving]
  - Headache [Recovered/Resolved]
  - Diplopia [Unknown]
  - Back pain [Unknown]
  - VIth nerve paralysis [Unknown]
  - Osteosclerosis [Unknown]
  - Cerebral disorder [Unknown]
  - Disease progression [Unknown]
  - Neurological symptom [Unknown]
  - Weight decreased [Unknown]
  - Alopecia [Unknown]
  - Arthralgia [Unknown]

NARRATIVE: CASE EVENT DATE: 20201101
